FAERS Safety Report 10028286 (Version 7)
Quarter: 2015Q3

REPORT INFORMATION
  Report Type: Report from Study
  Country: US (occurrence: US)
  Receive Date: 20140321
  Receipt Date: 20150826
  Transmission Date: 20151125
  Serious: Yes (Hospitalization, Other)
  Sender: FDA-Public Use
  Company Number: US-SA-2014SA033459

PATIENT
  Age: 47 Year
  Sex: Male

DRUGS (3)
  1. AUBAGIO [Suspect]
     Active Substance: TERIFLUNOMIDE
     Indication: MULTIPLE SCLEROSIS
     Route: 048
     Dates: start: 20131001
  2. AUBAGIO [Suspect]
     Active Substance: TERIFLUNOMIDE
     Indication: MULTIPLE SCLEROSIS
     Route: 048
     Dates: start: 20140317
  3. AUBAGIO [Suspect]
     Active Substance: TERIFLUNOMIDE
     Indication: MULTIPLE SCLEROSIS
     Route: 048

REACTIONS (13)
  - Cognitive disorder [Unknown]
  - Drug dose omission [Unknown]
  - Viral infection [Unknown]
  - Urinary tract infection [Recovering/Resolving]
  - Malaise [Unknown]
  - Fall [Recovering/Resolving]
  - Pyrexia [Unknown]
  - Vomiting [Unknown]
  - Diarrhoea [Unknown]
  - Seizure [Unknown]
  - Wheelchair user [Unknown]
  - Unevaluable event [Unknown]
  - Ear infection [Unknown]

NARRATIVE: CASE EVENT DATE: 20140323
